FAERS Safety Report 10228373 (Version 1)
Quarter: 2014Q2

REPORT INFORMATION
  Report Type: Spontaneous
  Country: US (occurrence: None)
  Receive Date: 20140505
  Receipt Date: 20140505
  Transmission Date: 20141212
  Serious: No
  Sender: FDA-Public Use
  Company Number: US-014967

PATIENT
  Age: 50 Year
  Sex: Female
  Weight: 74.84 kg

DRUGS (1)
  1. PICO-SALAX [Suspect]
     Indication: BOWEL PREPARATION
     Dosage: 1ST PACK: AT 4 PM WITH 40 OUNCES OF WATER. 2ND PACK: AT 10 PM WITH 24 OUNCES OF WATER ORAL)
     Route: 048
     Dates: start: 20140305, end: 20140305

REACTIONS (3)
  - Nausea [None]
  - Vomiting [None]
  - Drug ineffective [None]
